FAERS Safety Report 18923124 (Version 2)
Quarter: 2021Q1

REPORT INFORMATION
  Report Type: Report from Study
  Country: GT (occurrence: GT)
  Receive Date: 20210222
  Receipt Date: 20210310
  Transmission Date: 20210420
  Serious: Yes (Other)
  Sender: FDA-Public Use
  Company Number: NVSC2021GT040663

PATIENT
  Sex: Female
  Weight: 70.3 kg

DRUGS (1)
  1. EXFORGE HCT [Suspect]
     Active Substance: AMLODIPINE BESYLATE\HYDROCHLOROTHIAZIDE\VALSARTAN
     Indication: HYPERTENSION
     Dosage: 1 DF, QD
     Route: 065

REACTIONS (5)
  - Memory impairment [Unknown]
  - Blood glucose abnormal [Recovering/Resolving]
  - Vision blurred [Recovered/Resolved]
  - Diabetes mellitus [Unknown]
  - Vitamin D deficiency [Unknown]
